FAERS Safety Report 8246107-2 (Version None)
Quarter: 2012Q1

REPORT INFORMATION
  Report Type: 
  Country: None (occurrence: None)
  Receive Date: 20120330
  Receipt Date: 20120323
  Transmission Date: 20120608
  Serious: Yes (Death, Other)
  Sender: FDA-Public Use
  Company Number: PHHY2011JP35084

PATIENT
  Sex: Male

DRUGS (4)
  1. DIOVAN [Suspect]
     Indication: HYPERTENSION
     Dosage: 160 MG
     Route: 048
     Dates: start: 20090608
  2. PLAVIX [Concomitant]
     Dosage: 75 MG
     Route: 048
     Dates: start: 20071121
  3. ALLOPURINOL [Concomitant]
     Dosage: 100 MG
     Route: 048
     Dates: start: 20071121
  4. NORVASC [Concomitant]
     Dosage: 2.5 MG
     Route: 048
     Dates: start: 20071121

REACTIONS (3)
  - LUNG NEOPLASM MALIGNANT [None]
  - BLOOD PRESSURE DIASTOLIC DECREASED [None]
  - CEREBROVASCULAR ACCIDENT [None]
